FAERS Safety Report 22888095 (Version 2)
Quarter: 2025Q2

REPORT INFORMATION
  Report Type: Spontaneous
  Country: ES (occurrence: ES)
  Receive Date: 20230831
  Receipt Date: 20250505
  Transmission Date: 20250716
  Serious: Yes (Hospitalization, Other)
  Sender: AUROBINDO
  Company Number: ES-STADA-284454

PATIENT
  Age: 48 Year
  Sex: Male

DRUGS (7)
  1. ESCITALOPRAM [Suspect]
     Active Substance: ESCITALOPRAM OXALATE
     Indication: Product used for unknown indication
     Dosage: 15 MILLIGRAM, ONCE A DAY
     Route: 045
  2. CLONAZEPAM [Suspect]
     Active Substance: CLONAZEPAM
     Indication: Substance use
     Dosage: 0.5 MILLIGRAM, ONCE A DAY
     Route: 045
  3. DISULFIRAM [Suspect]
     Active Substance: DISULFIRAM
     Indication: Substance use
     Dosage: 12 GRAM, ONCE A DAY
     Route: 045
  4. DISULFIRAM [Suspect]
     Active Substance: DISULFIRAM
     Indication: Alcoholism
     Dosage: 250 MILLIGRAM, ONCE A DAY
     Route: 048
  5. SODIUM CHLORIDE [Suspect]
     Active Substance: SODIUM CHLORIDE
     Indication: Product used for unknown indication
     Route: 065
  6. PALIPERIDONE [Concomitant]
     Active Substance: PALIPERIDONE
     Indication: Schizophrenia
     Route: 030
  7. OLANZAPINE [Concomitant]
     Active Substance: OLANZAPINE
     Indication: Schizophrenia
     Dosage: 10 MILLIGRAM, 3 TIMES A DAY
     Route: 065

REACTIONS (2)
  - Acidosis hyperchloraemic [Recovered/Resolved]
  - Drug abuse [Recovering/Resolving]
